FAERS Safety Report 13556922 (Version 1)
Quarter: 2017Q2

REPORT INFORMATION
  Report Type: Spontaneous
  Country: RS (occurrence: RS)
  Receive Date: 20170518
  Receipt Date: 20170518
  Transmission Date: 20170830
  Serious: Yes (Death, Hospitalization, Other)
  Sender: FDA-Public Use
  Company Number: RS-STRIDES ARCOLAB LIMITED-2017SP007878

PATIENT

DRUGS (5)
  1. VANCOMYCIN [Suspect]
     Active Substance: VANCOMYCIN
     Indication: PNEUMONIA
     Dosage: 1 G, EVERY 12 HRS
     Route: 065
  2. HEMOMYCIN [Suspect]
     Active Substance: AZITHROMYCIN
     Indication: PNEUMONIA
     Dosage: 500 MG, EVERY 12 HRS
     Route: 065
  3. MERONEM [Suspect]
     Active Substance: MEROPENEM
     Indication: PNEUMONIA
     Dosage: 1 G, EVERY 8 HOURS
     Route: 065
  4. AMIKACIN [Suspect]
     Active Substance: AMIKACIN
     Indication: PNEUMONIA
     Dosage: 500 MG, EVERY 24 HOURS
     Route: 065
  5. LEVOMAX [Suspect]
     Active Substance: LEVOFLOXACIN
     Indication: PNEUMONIA
     Dosage: 500 MG, EVERY 24 HOURS
     Route: 065

REACTIONS (14)
  - Abdominal distension [None]
  - Haemodynamic instability [Unknown]
  - Nausea [Unknown]
  - Clostridium difficile infection [Fatal]
  - Pallor [Unknown]
  - Vomiting [Unknown]
  - Tachycardia [Unknown]
  - Multiple organ dysfunction syndrome [Fatal]
  - General physical health deterioration [Unknown]
  - Lactic acidosis [Fatal]
  - Megacolon [Fatal]
  - Dehydration [Unknown]
  - Diarrhoea [Unknown]
  - Abdominal pain [Unknown]
